FAERS Safety Report 18413265 (Version 2)
Quarter: 2020Q4

REPORT INFORMATION
  Report Type: Spontaneous
  Country: SG (occurrence: SG)
  Receive Date: 20201021
  Receipt Date: 20201209
  Transmission Date: 20210114
  Serious: Yes (Other)
  Sender: FDA-Public Use
  Company Number: SG-ASTRAZENECA-2020SF35074

PATIENT
  Sex: Female

DRUGS (1)
  1. SYMBICORT [Suspect]
     Active Substance: BUDESONIDE\FORMOTEROL FUMARATE DIHYDRATE
     Indication: ASTHMA
     Dosage: 160/4.5 MCG, UNKNOWN DOSE AND FREQUENCY UNKNOWN
     Route: 055

REACTIONS (3)
  - Asthma [Not Recovered/Not Resolved]
  - Device defective [Unknown]
  - Drug ineffective [Unknown]
